FAERS Safety Report 4997268-X (Version None)
Quarter: 2006Q1

REPORT INFORMATION
  Report Type: 
  Country: None (occurrence: None)
  Receive Date: 20060315
  Receipt Date: 20060104
  Transmission Date: 20060701
  Serious: Yes (Other)
  Sender: FDA-Public Use
  Company Number: 430920

PATIENT
  Age: 80 Year
  Sex: Female

DRUGS (5)
  1. BONIVA [Suspect]
     Indication: OSTEOPOROSIS
     Dosage: 150 MG 1 PER MONTH ORAL
     Route: 048
     Dates: start: 20051115
  2. ATENOLOL [Concomitant]
  3. SUGAR (NISOLDIPINE) [Concomitant]
  4. VITAMINS NOS (MULTIVITAMIN NOS) [Concomitant]
  5. ACETAMINOPHEN [Concomitant]

REACTIONS (3)
  - CHEST DISCOMFORT [None]
  - CHEST PAIN [None]
  - ERUCTATION [None]
